FAERS Safety Report 4747109-0 (Version None)
Quarter: 2005Q3

REPORT INFORMATION
  Report Type: 
  Country: None (occurrence: None)
  Receive Date: 20050815
  Receipt Date: 20050801
  Transmission Date: 20060218
  Serious: Yes (Other)
  Sender: FDA-Public Use
  Company Number: HQWYE672703AUG05

PATIENT
  Age: 46 Year
  Sex: Female
  Weight: 61.29 kg

DRUGS (2)
  1. PREMARIN [Suspect]
     Indication: HORMONE REPLACEMENT THERAPY
     Dosage: 0.625 MG 1X PER 1 DAY, ORAL
     Route: 048
     Dates: start: 20050724
  2. PREMARIN [Suspect]
     Indication: HOT FLUSH
     Dosage: 0.625 MG 1X PER 1 DAY, ORAL
     Route: 048
     Dates: start: 20050724

REACTIONS (5)
  - ASTHENIA [None]
  - DIZZINESS [None]
  - DRUG DOSE OMISSION [None]
  - DYSARTHRIA [None]
  - FEELING DRUNK [None]
